FAERS Safety Report 18491294 (Version 3)
Quarter: 2020Q4

REPORT INFORMATION
  Report Type: Report from Study
  Country: CN (occurrence: CN)
  Receive Date: 20201111
  Receipt Date: 20201201
  Transmission Date: 20210114
  Serious: Yes (Death, Hospitalization)
  Sender: FDA-Public Use
  Company Number: CN-ASTRAZENECA-2020SF46610

PATIENT
  Age: 597 Month
  Sex: Female
  Weight: 50 kg

DRUGS (1)
  1. TAGRISSO [Suspect]
     Active Substance: OSIMERTINIB
     Route: 048
     Dates: start: 20200715

REACTIONS (3)
  - Disease progression [Unknown]
  - Death [Fatal]
  - Feeding disorder [Unknown]

NARRATIVE: CASE EVENT DATE: 202010
